FAERS Safety Report 9557245 (Version 1)
Quarter: 2013Q3

REPORT INFORMATION
  Report Type: Spontaneous
  Country: US (occurrence: None)
  Receive Date: 20130724
  Receipt Date: 20130724
  Transmission Date: 20140515
  Serious: Yes (Other)
  Sender: FDA-Public Use
  Company Number: PHEH2013US007795

PATIENT
  Age: 32 Year
  Sex: Female
  Weight: 45.4 kg

DRUGS (7)
  1. GILENYA (FINGOLIMOD) CAPSULE, 0.5MG [Suspect]
     Indication: RELAPSING-REMITTING MULTIPLE SCLEROSIS
     Route: 048
     Dates: start: 20120126, end: 20121222
  2. LISINOPRIL [Concomitant]
  3. CLONIDINE [Concomitant]
  4. ETODOLAC [Concomitant]
  5. RELPAX (ELETRIPTAN HYDROBROMIDE) [Concomitant]
  6. METOPROLOL [Concomitant]
  7. AMANTADINE [Concomitant]

REACTIONS (1)
  - Hypertension [None]
